FAERS Safety Report 9775554 (Version 3)
Quarter: 2014Q1

REPORT INFORMATION
  Report Type: Spontaneous
  Country: US (occurrence: US)
  Receive Date: 20131220
  Receipt Date: 20140318
  Transmission Date: 20141002
  Serious: No
  Sender: FDA-Public Use
  Company Number: US-GALDERMA-US13003727

PATIENT
  Age: 56 Year
  Sex: Female

DRUGS (5)
  1. MIRVASO (BRIMONIDINE) TOPICAL GEL, 0.33% [Suspect]
     Indication: ROSACEA
     Dosage: 0.33%
     Route: 061
     Dates: start: 20131104
  2. AMLODIPINE BESYLATE [Concomitant]
     Dosage: 5 MG
     Route: 048
  3. BYSTOLIC [Concomitant]
     Dosage: 5 MG
     Route: 048
  4. COUMADIN [Concomitant]
     Dosage: 3 MG
     Route: 048
  5. BIOTIN [Concomitant]
     Dosage: 5000
     Route: 048

REACTIONS (6)
  - Swelling face [Recovered/Resolved]
  - Feeling hot [Recovered/Resolved]
  - Erythema [Recovered/Resolved]
  - Rosacea [Recovered/Resolved]
  - Dermatitis [Recovered/Resolved]
  - Skin burning sensation [Recovered/Resolved]
